FAERS Safety Report 17938565 (Version 1)
Quarter: 2020Q2

REPORT INFORMATION
  Report Type: Spontaneous
  Country: CA (occurrence: CA)
  Receive Date: 20200624
  Receipt Date: 20200624
  Transmission Date: 20200714
  Serious: Yes (Disabling)
  Sender: FDA-Public Use
  Company Number: CA-TEVA-2020-CA-1792641

PATIENT
  Age: 18 Year
  Sex: Female

DRUGS (1)
  1. MEDROXYPROGESTERONE ACETATE. [Suspect]
     Active Substance: MEDROXYPROGESTERONE ACETATE
     Indication: MENSTRUAL DISCOMFORT
     Route: 065

REACTIONS (10)
  - Myalgia [Unknown]
  - Fatigue [Unknown]
  - Loss of personal independence in daily activities [Unknown]
  - Burning sensation [Unknown]
  - Depression [Unknown]
  - Weight decreased [Unknown]
  - Panic reaction [Unknown]
  - Anxiety [Unknown]
  - Bursitis [Unknown]
  - Insomnia [Unknown]
